FAERS Safety Report 24787667 (Version 1)
Quarter: 2024Q4

REPORT INFORMATION
  Report Type: Report from Study
  Country: US (occurrence: US)
  Receive Date: 20241230
  Receipt Date: 20241230
  Transmission Date: 20250114
  Serious: Yes (Hospitalization)
  Sender: RECORDATI
  Company Number: US-RECORDATI RARE DISEASE INC.-2024010221

PATIENT

DRUGS (13)
  1. ISTURISA [Suspect]
     Active Substance: OSILODROSTAT PHOSPHATE
     Indication: Cushing^s syndrome
     Dosage: 3 MG DAILY, BID (2 MG IN THE MORNING AND 1 MG IN THE EVENING)
     Route: 048
     Dates: start: 20221006
  2. ISTURISA [Suspect]
     Active Substance: OSILODROSTAT PHOSPHATE
     Dosage: 3 MG DAILY, BID (1MG MORNING AND 2MG EVENING)
     Route: 048
     Dates: end: 20241212
  3. ISTURISA [Suspect]
     Active Substance: OSILODROSTAT PHOSPHATE
     Dosage: 3 MG DAILY, BID (1MG MORNING AND 2MG EVENING)
     Route: 048
     Dates: start: 20241218
  4. ASPIRIN [Concomitant]
     Active Substance: ASPIRIN
     Indication: Product used for unknown indication
     Dosage: 81 MG, QD, TABLET, DELAYED RELEASE
     Route: 048
     Dates: start: 20201001
  5. BENADRYL ALLERGY [Concomitant]
     Active Substance: DIPHENHYDRAMINE HYDROCHLORIDE
     Indication: Product used for unknown indication
     Dosage: 25 MG, QD, AT NIGHT, ULTRATABLETS
     Route: 048
     Dates: start: 20230304
  6. CABLIVI [Concomitant]
     Active Substance: CAPLACIZUMAB-YHDP
     Indication: Product used for unknown indication
     Dosage: 11 MG, QD, INJECTION, KIT 11 MG
     Dates: start: 20231219
  7. HYDROCORTISONE [Concomitant]
     Active Substance: HYDROCORTISONE
     Indication: Product used for unknown indication
     Dosage: 0.5 PERCENT, BID, EXTERNAL CREAM 0.5%
     Route: 061
     Dates: start: 20230304
  8. LASIX [Concomitant]
     Active Substance: FUROSEMIDE
     Indication: Product used for unknown indication
     Dosage: 20 MG, QD, TABLET 20 MG
     Route: 048
     Dates: start: 20201001, end: 20241219
  9. MIRENA [Concomitant]
     Active Substance: LEVONORGESTREL
     Indication: Product used for unknown indication
     Dosage: 20 MICROGRAM, QD, INTRAUTERINE, CONTINOUS
     Route: 015
     Dates: start: 20221018
  10. PROTONIX [Concomitant]
     Active Substance: PANTOPRAZOLE SODIUM
     Indication: Product used for unknown indication
     Dosage: 40 MG, QD, ONE PACKET 40 MG
     Route: 048
     Dates: start: 20231219
  11. TRULICITY [Concomitant]
     Active Substance: DULAGLUTIDE
     Indication: Product used for unknown indication
     Dosage: 4.5 MG/0.5ML, QW, SOLUTION PEN
     Route: 058
     Dates: start: 20220401, end: 20241219
  12. TYLENOL EXTRA STRENGTH [Concomitant]
     Active Substance: ACETAMINOPHEN
     Indication: Product used for unknown indication
     Dosage: 500 MG, PRN, TABLET
     Route: 048
     Dates: start: 19960405
  13. ZOFRAN [Concomitant]
     Active Substance: ONDANSETRON HYDROCHLORIDE
     Indication: Product used for unknown indication
     Dosage: 4 MG, QD, TABLET
     Route: 048
     Dates: start: 20221018

REACTIONS (1)
  - Thrombotic thrombocytopenic purpura [Recovered/Resolved]

NARRATIVE: CASE EVENT DATE: 20241212
